FAERS Safety Report 13935918 (Version 1)
Quarter: 2017Q3

REPORT INFORMATION
  Report Type: Spontaneous
  Country: US (occurrence: US)
  Receive Date: 20170904
  Receipt Date: 20170904
  Transmission Date: 20171127
  Serious: Yes (Life-Threatening, Hospitalization)
  Sender: FDA-Public Use
  Company Number: None

PATIENT
  Age: 76 Year
  Weight: 85.5 kg

DRUGS (15)
  1. BREO ELLIPTA [Suspect]
     Active Substance: FLUTICASONE FUROATE\VILANTEROL TRIFENATATE
     Indication: CHRONIC OBSTRUCTIVE PULMONARY DISEASE
     Route: 048
     Dates: start: 20170508, end: 20170621
  2. FAMOTIDINE. [Concomitant]
     Active Substance: FAMOTIDINE
  3. ATORVASTATIN [Concomitant]
     Active Substance: ATORVASTATIN
  4. PERFOROMIST (FORMOTEROL/FUMARATE) [Concomitant]
  5. SPIRIVA [Concomitant]
     Active Substance: TIOTROPIUM BROMIDE MONOHYDRATE
  6. TAMULOSIN (FLOMAX) [Concomitant]
  7. FINESTERIDE (PROSCAR) [Concomitant]
  8. METOPROLOL. [Concomitant]
     Active Substance: METOPROLOL
  9. VENTOLIN [Concomitant]
     Active Substance: ALBUTEROL SULFATE
  10. NEXIUM [Concomitant]
     Active Substance: ESOMEPRAZOLE MAGNESIUM
  11. ALBUTEROL. [Concomitant]
     Active Substance: ALBUTEROL
  12. LYRICA [Concomitant]
     Active Substance: PREGABALIN
  13. CITALOPRAM [Concomitant]
     Active Substance: CITALOPRAM HYDROBROMIDE
  14. AMLODIPINE BESYLATE. [Concomitant]
     Active Substance: AMLODIPINE BESYLATE
  15. ASPIRIN. [Concomitant]
     Active Substance: ASPIRIN

REACTIONS (12)
  - Agitation [None]
  - Supraventricular tachycardia [None]
  - Nervousness [None]
  - Tremor [None]
  - Impaired driving ability [None]
  - Aggression [None]
  - Dizziness [None]
  - Asthenia [None]
  - Heart rate increased [None]
  - Incoherent [None]
  - Diarrhoea [None]
  - Patient uncooperative [None]

NARRATIVE: CASE EVENT DATE: 20170619
